FAERS Safety Report 12873495 (Version 4)
Quarter: 2018Q1

REPORT INFORMATION
  Report Type: Report from Study
  Country: US (occurrence: US)
  Receive Date: 20161021
  Receipt Date: 20180105
  Transmission Date: 20180508
  Serious: No
  Sender: FDA-Public Use
  Company Number: US-AMGEN-USASL2016125732

PATIENT
  Age: 62 Year
  Sex: Female
  Weight: 90.7 kg

DRUGS (3)
  1. REPATHA [Suspect]
     Active Substance: EVOLOCUMAB
     Indication: HYPERLIPIDAEMIA
  2. REPATHA [Suspect]
     Active Substance: EVOLOCUMAB
     Indication: CORONARY ARTERY DISEASE
  3. REPATHA [Suspect]
     Active Substance: EVOLOCUMAB
     Indication: CARDIAC DISORDER
     Dosage: UNK
     Route: 065
     Dates: start: 201602

REACTIONS (4)
  - Off label use [Unknown]
  - Weight decreased [Unknown]
  - Glycosylated haemoglobin decreased [Unknown]
  - Drug dose omission [Unknown]
